FAERS Safety Report 15737182 (Version 4)
Quarter: 2019Q1

REPORT INFORMATION
  Report Type: Report from Study
  Country: US (occurrence: US)
  Receive Date: 20181218
  Receipt Date: 20190205
  Transmission Date: 20190417
  Serious: No
  Sender: FDA-Public Use
  Company Number: US-SA-2018SA342168

PATIENT
  Age: 78 Year
  Sex: Female

DRUGS (2)
  1. ALIROCUMAB [Suspect]
     Active Substance: ALIROCUMAB
     Indication: BLOOD CHOLESTEROL
     Dosage: 150 MG, QOW
     Route: 058
     Dates: start: 20181128
  2. ALIROCUMAB [Suspect]
     Active Substance: ALIROCUMAB
     Indication: ARTERIOSCLEROSIS

REACTIONS (7)
  - Injection site haemorrhage [Unknown]
  - Sensitivity of teeth [Unknown]
  - Injection site mass [Not Recovered/Not Resolved]
  - Dry mouth [Unknown]
  - Injection site discolouration [Recovering/Resolving]
  - Gingival recession [Unknown]
  - Injection site discolouration [Recovered/Resolved]

NARRATIVE: CASE EVENT DATE: 2018
